FAERS Safety Report 24367124 (Version 1)
Quarter: 2024Q3

REPORT INFORMATION
  Report Type: Spontaneous
  Country: US (occurrence: None)
  Receive Date: 20240926
  Receipt Date: 20240926
  Transmission Date: 20241016
  Serious: No
  Sender: Public
  Company Number: None

PATIENT
  Age: 70 Year
  Sex: Female

DRUGS (5)
  1. XDEMVY [Suspect]
     Active Substance: LOTILANER
     Indication: Demodex blepharitis
     Dosage: OTHER QUANTITY : 1 DROP INTO BOTH EYES;?FREQUENCY : TWICE A DAY;?
     Route: 047
     Dates: start: 20240912
  2. MOTRIN [Concomitant]
  3. NEXIUM [Concomitant]
  4. TOBRADEX OPHTH OINT [Concomitant]
  5. ZYRTEC [Concomitant]
     Active Substance: CETIRIZINE HYDROCHLORIDE

REACTIONS (6)
  - Headache [None]
  - Hot flush [None]
  - Eye irritation [None]
  - Eye infection [None]
  - Rhinorrhoea [None]
  - Dyspepsia [None]

NARRATIVE: CASE EVENT DATE: 20240913
